FAERS Safety Report 25526543 (Version 1)
Quarter: 2025Q3

REPORT INFORMATION
  Report Type: Spontaneous
  Country: US (occurrence: US)
  Receive Date: 20250707
  Receipt Date: 20250707
  Transmission Date: 20251021
  Serious: No
  Sender: CALLIDITAS THERAPEUTICS AB
  Company Number: US-Calliditas-2025CAL01858

PATIENT
  Age: 76 Year
  Sex: Male

DRUGS (20)
  1. TARPEYO [Suspect]
     Active Substance: BUDESONIDE
     Indication: IgA nephropathy
     Route: 048
     Dates: start: 20250421
  2. LOSARTAN AND HIDROCLOROTIAZIDA TEVA [Concomitant]
  3. LOTRISONE [Concomitant]
     Active Substance: BETAMETHASONE DIPROPIONATE\CLOTRIMAZOLE
  4. METOPROLOL [Concomitant]
     Active Substance: METOPROLOL
  5. MOMETASONE [Concomitant]
     Active Substance: MOMETASONE
  6. MOXIFLOXACIN [Concomitant]
     Active Substance: MOXIFLOXACIN
  7. OMEGA-3 FATTY ACIDS [Concomitant]
     Active Substance: OMEGA-3 FATTY ACIDS
  8. PANTOPRAZOLE [Concomitant]
     Active Substance: PANTOPRAZOLE
  9. ALLOPURINOL [Concomitant]
     Active Substance: ALLOPURINOL
  10. ATRASENTAN [Concomitant]
     Active Substance: ATRASENTAN
  11. AZELASTINE [Concomitant]
     Active Substance: AZELASTINE
  12. CEQUA [Concomitant]
     Active Substance: CYCLOSPORINE
  13. ERYTHROMYCIN [Concomitant]
     Active Substance: ERYTHROMYCIN
  14. EZETIMIBE [Concomitant]
     Active Substance: EZETIMIBE
  15. FAMOTIDINE [Concomitant]
     Active Substance: FAMOTIDINE
  16. HYDROCHLOROTHIAZIDE [Concomitant]
     Active Substance: HYDROCHLOROTHIAZIDE
  17. HYDROCORTISONE [Concomitant]
     Active Substance: HYDROCORTISONE
  18. LISINOPRIL [Concomitant]
     Active Substance: LISINOPRIL
  19. PREDNISOLONE [Concomitant]
     Active Substance: PREDNISOLONE
  20. ROSUVASTATIN [Concomitant]
     Active Substance: ROSUVASTATIN

REACTIONS (2)
  - Nasopharyngitis [Recovered/Resolved]
  - Swelling [Recovered/Resolved]
